FAERS Safety Report 5339585-X (Version None)
Quarter: 2007Q2

REPORT INFORMATION
  Report Type: 
  Country: None (occurrence: None)
  Receive Date: 20070525
  Receipt Date: 20070511
  Transmission Date: 20071010
  Serious: Yes (Death, Life-Threatening)
  Sender: FDA-Public Use
  Company Number: GXKR2007US04276

PATIENT
  Age: 68 Year
  Sex: Male

DRUGS (1)
  1. WARFARIN SODIUM [Suspect]
     Indication: ATRIAL FIBRILLATION

REACTIONS (9)
  - CONTUSION [None]
  - FALL [None]
  - FUNGAEMIA [None]
  - HAEMORRHAGE INTRACRANIAL [None]
  - INTERNATIONAL NORMALISED RATIO INCREASED [None]
  - PNEUMONIA [None]
  - RESPIRATORY DISTRESS [None]
  - SPINAL CORD HAEMORRHAGE [None]
  - SPINAL CORD OEDEMA [None]
